FAERS Safety Report 6478852-3 (Version None)
Quarter: 2009Q4

REPORT INFORMATION
  Report Type: 
  Country: None (occurrence: None)
  Receive Date: 20091207
  Receipt Date: 20091207
  Transmission Date: 20100525
  Serious: Yes (Hospitalization)
  Sender: FDA-Public Use
  Company Number: US-B.I. PHARMACEUTICALS,INC./RIDGEFIELD-2009-BP-09012BP

PATIENT
  Sex: Female

DRUGS (5)
  1. SPIRIVA [Suspect]
     Indication: CHRONIC OBSTRUCTIVE PULMONARY DISEASE
     Dosage: 18 MCG
     Route: 055
     Dates: start: 20040101
  2. SYNTHROID [Concomitant]
     Indication: HYPOTHYROIDISM
     Dosage: 100 MCG
     Route: 048
     Dates: start: 19840101
  3. ASPIRIN [Concomitant]
     Indication: CORONARY ARTERIAL STENT INSERTION
     Dosage: 81 MG
     Route: 048
  4. ALBUTEROL [Concomitant]
     Indication: CHRONIC OBSTRUCTIVE PULMONARY DISEASE
  5. XANAX [Concomitant]
     Dosage: 2.5 MG
     Route: 048

REACTIONS (4)
  - DYSPNOEA [None]
  - GLUCOSE TOLERANCE IMPAIRED [None]
  - HYPERTENSION [None]
  - PNEUMONIA [None]
